FAERS Safety Report 18834262 (Version 2)
Quarter: 2021Q1

REPORT INFORMATION
  Report Type: Spontaneous
  Country: JP (occurrence: JP)
  Receive Date: 20210203
  Receipt Date: 20210324
  Transmission Date: 20210419
  Serious: Yes (Other)
  Sender: FDA-Public Use
  Company Number: JP-MYLANLABS-2021M1005670

PATIENT
  Age: 56 Year
  Sex: Female
  Weight: 70 kg

DRUGS (4)
  1. TAMOXIFEN TABLETS 20MG ^MYL^ [Suspect]
     Active Substance: TAMOXIFEN
     Indication: CANCER SURGERY
  2. TAMOXIFEN [Suspect]
     Active Substance: TAMOXIFEN
     Indication: CANCER SURGERY
  3. TAMOXIFEN TABLETS 20MG ^MYL^ [Suspect]
     Active Substance: TAMOXIFEN
     Indication: BREAST CANCER
     Dosage: 20 MILLIGRAM, QD
     Route: 048
     Dates: start: 20180830, end: 202003
  4. TAMOXIFEN [Suspect]
     Active Substance: TAMOXIFEN
     Indication: BREAST CANCER
     Dosage: 20 MILLIGRAM, QD
     Route: 048
     Dates: start: 202004, end: 202009

REACTIONS (2)
  - Muscle spasms [Recovered/Resolved]
  - Arthralgia [Recovered/Resolved]

NARRATIVE: CASE EVENT DATE: 20180830
